FAERS Safety Report 4281650-2 (Version None)
Quarter: 2004Q1

REPORT INFORMATION
  Report Type: 
  Country: None (occurrence: None)
  Receive Date: 20040128
  Receipt Date: 20040115
  Transmission Date: 20041129
  Serious: Yes (Death)
  Sender: FDA-Public Use
  Company Number: 204194

PATIENT
  Age: 74 Year
  Sex: Male
  Weight: 63 kg

DRUGS (7)
  1. RITUXAN [Suspect]
     Indication: NON-HODGKIN'S LYMPHOMA
     Dosage: 500  MG, INTRAVENOUS
     Route: 042
     Dates: start: 20031027, end: 20031228
  2. VINCRISTINE [Suspect]
     Indication: NON-HODGKIN'S LYMPHOMA
     Dosage: 1.8 MG, INTRAVENOUS
     Route: 042
     Dates: start: 20031030, end: 20031030
  3. DOXORUBICIN HCL [Suspect]
     Indication: NON-HODGKIN'S LYMPHOMA
     Dosage: 60 MG, INTRAVENOUS
     Route: 042
     Dates: start: 20031030, end: 20031030
  4. CYCLOPHOSPHAMIDE [Suspect]
     Indication: NON-HODGKIN'S LYMPHOMA
     Dosage: 1000 MG, INTRAVENOUS
     Route: 042
     Dates: start: 20031030, end: 20031030
  5. DICLOFENC SODIUM (DICLOFENAC SODIUM) [Suspect]
  6. LORNOXICAM (LORNOXICAM) [Concomitant]
  7. MISOPROSTOL [Concomitant]

REACTIONS (12)
  - ASCITES [None]
  - BLOOD PRESSURE DECREASED [None]
  - CARDIAC ARREST [None]
  - DEPRESSED LEVEL OF CONSCIOUSNESS [None]
  - ESCHERICHIA INFECTION [None]
  - GENERAL PHYSICAL HEALTH DETERIORATION [None]
  - HISTIOCYTOSIS HAEMATOPHAGIC [None]
  - LEUKOPENIA [None]
  - RESPIRATORY DISORDER [None]
  - SEPTIC SHOCK [None]
  - SHOCK [None]
  - SPLENIC HAEMORRHAGE [None]
